FAERS Safety Report 12458477 (Version 1)
Quarter: 2016Q2

REPORT INFORMATION
  Report Type: Spontaneous
  Country: US (occurrence: None)
  Receive Date: 20160610
  Receipt Date: 20160610
  Transmission Date: 20160815
  Serious: Yes (Hospitalization, Disabling, Other)
  Sender: FDA-Public Use
  Company Number: None

PATIENT
  Age: 49 Year
  Sex: Female
  Weight: 74.84 kg

DRUGS (3)
  1. KYBELLA [Suspect]
     Active Substance: DEOXYCHOLIC ACID
  2. FISH OIL [Concomitant]
     Active Substance: FISH OIL
  3. BAYER LOW DOSE ASPIRIN [Concomitant]

REACTIONS (5)
  - Headache [None]
  - Palpitations [None]
  - Swelling [None]
  - Vision blurred [None]
  - Amnesia [None]

NARRATIVE: CASE EVENT DATE: 20160105
